FAERS Safety Report 18740398 (Version 3)
Quarter: 2021Q1

REPORT INFORMATION
  Report Type: Spontaneous
  Country: US (occurrence: US)
  Receive Date: 20210114
  Receipt Date: 20210304
  Transmission Date: 20210419
  Serious: Yes (Other)
  Sender: FDA-Public Use
  Company Number: US-ASTRAZENECA-2021A002844

PATIENT
  Sex: Female

DRUGS (1)
  1. BREZTRI AEROSPHERE [Suspect]
     Active Substance: BUDESONIDE\FORMOTEROL\GLYCOPYRRONIUM
     Indication: ASTHMA
     Dosage: 160 MCG/9 MCG/4.8 MCG 2 PUFFS TWO TIMES A DAY
     Route: 055
     Dates: start: 20201101

REACTIONS (4)
  - Schwannoma [Unknown]
  - Asthma [Unknown]
  - Drug delivery system issue [Unknown]
  - Off label use [Unknown]
